FAERS Safety Report 14350000 (Version 1)
Quarter: 2018Q1

REPORT INFORMATION
  Report Type: Spontaneous
  Country: ES (occurrence: ES)
  Receive Date: 20180104
  Receipt Date: 20180104
  Transmission Date: 20180509
  Serious: Yes (Life-Threatening)
  Sender: FDA-Public Use
  Company Number: ES-AUROBINDO-AUR-APL-2018-000231

PATIENT
  Age: 71 Year
  Sex: Female

DRUGS (6)
  1. LINEZOLID 600 MG [Suspect]
     Active Substance: LINEZOLID
     Indication: PNEUMONIA
     Dosage: 600 MG C/12H ()
     Route: 042
     Dates: start: 20170214, end: 20170217
  2. MEROGRAM 1000MG [Suspect]
     Active Substance: MEROPENEM
     Indication: PNEUMONIA
     Dosage: 2 G C/8H ()
     Route: 042
     Dates: start: 20170216, end: 20170306
  3. PIPERACILLIN AND TAZOBACTAM [Suspect]
     Active Substance: PIPERACILLIN SODIUM\TAZOBACTAM SODIUM
     Indication: PNEUMONIA
     Dosage: 4 G C/8H ()
     Route: 042
     Dates: start: 20170202, end: 20170214
  4. SALBUAIR [Concomitant]
     Indication: PNEUMONIA
     Dosage: 2.5 MG C/8H ()
     Route: 055
     Dates: start: 20170202, end: 20170227
  5. IPRATROPII BROMIDUM [Concomitant]
     Indication: PNEUMONIA
     Dosage: 500 MCG C/8HG ()
     Route: 055
     Dates: start: 20170202, end: 20170327
  6. CLEXANE [Concomitant]
     Active Substance: ENOXAPARIN SODIUM
     Indication: PRODUCT USED FOR UNKNOWN INDICATION
     Dosage: 40 MG C/24H ()
     Route: 058
     Dates: start: 20170202, end: 20170327

REACTIONS (3)
  - Relapsing fever [Recovered/Resolved with Sequelae]
  - Dyspnoea [Recovered/Resolved with Sequelae]
  - Leukopenia [Recovered/Resolved with Sequelae]

NARRATIVE: CASE EVENT DATE: 20170217
